FAERS Safety Report 21545675 (Version 6)
Quarter: 2023Q1

REPORT INFORMATION
  Report Type: Report from Study
  Country: US (occurrence: US)
  Receive Date: 20221103
  Receipt Date: 20230310
  Transmission Date: 20230418
  Serious: No
  Sender: FDA-Public Use
  Company Number: US-002147023-NVSC2022US246060

PATIENT
  Sex: Female

DRUGS (2)
  1. TREPROSTINIL [Suspect]
     Active Substance: TREPROSTINIL
     Indication: Pulmonary arterial hypertension
     Dosage: UNK UNK, CONT 50 NG/KG/MIN (2.5 MG/ML)
     Route: 058
     Dates: start: 20220801
  2. TREPROSTINIL [Suspect]
     Active Substance: TREPROSTINIL
     Dosage: UNK, CONT 104.60NG/KG/MIN (5MG/ML)
     Route: 058
     Dates: start: 20220824

REACTIONS (3)
  - Device infusion issue [Unknown]
  - Infusion site pruritus [Not Recovered/Not Resolved]
  - Infusion site pain [Unknown]
